FAERS Safety Report 5959826-5 (Version None)
Quarter: 2008Q4

REPORT INFORMATION
  Report Type: 
  Country: None (occurrence: None)
  Receive Date: 20081120
  Receipt Date: 20081114
  Transmission Date: 20090506
  Serious: Yes (Hospitalization)
  Sender: FDA-Public Use
  Company Number: B0538257A

PATIENT
  Age: 58 Year
  Sex: Male

DRUGS (1)
  1. ROSIGLITAZONE MALEATE AND METFORMIN HCL [Suspect]
     Indication: DIABETES MELLITUS
     Route: 065

REACTIONS (3)
  - CARDIAC FAILURE [None]
  - CONGESTIVE CARDIOMYOPATHY [None]
  - ISCHAEMIC CARDIOMYOPATHY [None]
